FAERS Safety Report 12478287 (Version 2)
Quarter: 2016Q3

REPORT INFORMATION
  Report Type: Spontaneous
  Country: US (occurrence: US)
  Receive Date: 20160617
  Receipt Date: 20160816
  Transmission Date: 20161109
  Serious: Yes (Other)
  Sender: FDA-Public Use
  Company Number: US-JAZZ-2016-US-010954

PATIENT
  Age: 13 Year
  Sex: Male

DRUGS (8)
  1. XYREM [Suspect]
     Active Substance: SODIUM OXYBATE
     Dosage: APPROXIMATELY 1.275 G SECOND DOSE
     Route: 048
     Dates: start: 20160607, end: 20160607
  2. GABAPENTIN. [Concomitant]
     Active Substance: GABAPENTIN
     Indication: PRODUCT USED FOR UNKNOWN INDICATION
     Dosage: 100 MG, TID
  3. XYREM [Suspect]
     Active Substance: SODIUM OXYBATE
     Dosage: 3 G, QD
     Route: 048
     Dates: start: 20160608, end: 20160608
  4. XYREM [Suspect]
     Active Substance: SODIUM OXYBATE
     Dosage: 2.25 G, QD
     Dates: start: 201606
  5. ALLEGRA ALLERGY [Concomitant]
     Active Substance: FEXOFENADINE HYDROCHLORIDE
     Indication: PRODUCT USED FOR UNKNOWN INDICATION
  6. XYREM [Suspect]
     Active Substance: SODIUM OXYBATE
     Dosage: 3.2 G, QD
     Route: 048
     Dates: start: 20160609, end: 201606
  7. XYREM [Suspect]
     Active Substance: SODIUM OXYBATE
     Indication: NARCOLEPSY
     Dosage: 2.5 G, FIRST DOSE
     Route: 048
     Dates: start: 20160607, end: 20160607
  8. MVI [Concomitant]
     Active Substance: VITAMINS
     Indication: PRODUCT USED FOR UNKNOWN INDICATION

REACTIONS (16)
  - Moaning [Recovered/Resolved]
  - Inappropriate affect [Recovered/Resolved]
  - Crying [Recovered/Resolved]
  - Abnormal behaviour [Recovered/Resolved]
  - Somnolence [Not Recovered/Not Resolved]
  - Fatigue [Recovering/Resolving]
  - Dysarthria [Recovered/Resolved]
  - Headache [Not Recovered/Not Resolved]
  - Muscle twitching [Unknown]
  - Hangover [Not Recovered/Not Resolved]
  - Feeling abnormal [Not Recovered/Not Resolved]
  - Unevaluable event [Not Recovered/Not Resolved]
  - Head banging [Recovered/Resolved]
  - Inappropriate schedule of drug administration [Unknown]
  - Hypoaesthesia [Unknown]
  - Delirium [Recovered/Resolved]

NARRATIVE: CASE EVENT DATE: 201606
